FAERS Safety Report 9702842 (Version 1)
Quarter: 2013Q4

REPORT INFORMATION
  Report Type: Spontaneous
  Country: US (occurrence: None)
  Receive Date: 20131120
  Receipt Date: 20131120
  Transmission Date: 20140711
  Serious: Yes (Other)
  Sender: FDA-Public Use
  Company Number: SYM-2013-12851

PATIENT
  Age: 5 Year
  Sex: Male

DRUGS (1)
  1. XENAZINE [Suspect]
     Indication: CHOREA
     Dates: start: 201309

REACTIONS (3)
  - Gastrointestinal motility disorder [None]
  - Drug ineffective [None]
  - Constipation [None]
